FAERS Safety Report 16166146 (Version 3)
Quarter: 2020Q2

REPORT INFORMATION
  Report Type: Spontaneous
  Country: DE (occurrence: DE)
  Receive Date: 20190406
  Receipt Date: 20200527
  Transmission Date: 20200713
  Serious: Yes (Hospitalization, Other)
  Sender: FDA-Public Use
  Company Number: DE-ACCORD-118798

PATIENT
  Age: 62 Year
  Sex: Male

DRUGS (10)
  1. ABATACEPT [Suspect]
     Active Substance: ABATACEPT
     Indication: PRODUCT USED FOR UNKNOWN INDICATION
     Dosage: UNK
  2. PREDNISOLONE. [Suspect]
     Active Substance: PREDNISOLONE
     Indication: PRODUCT USED FOR UNKNOWN INDICATION
     Dosage: LOW-DOSE
     Route: 048
  3. RITUXIMAB. [Suspect]
     Active Substance: RITUXIMAB
     Indication: PRODUCT USED FOR UNKNOWN INDICATION
     Dosage: UNK
     Dates: start: 200808
  4. INFLIXIMAB HOSPIRA [Suspect]
     Active Substance: INFLIXIMAB
     Indication: PRODUCT USED FOR UNKNOWN INDICATION
     Dosage: UNK
     Dates: start: 200802
  5. ETANERCEPT [Suspect]
     Active Substance: ETANERCEPT
     Indication: PSORIASIS
     Dosage: UNK
     Dates: start: 200710
  6. CERTOLIZUMAB/CERTOLIZUMAB PEGOL [Suspect]
     Active Substance: CERTOLIZUMAB PEGOL
     Indication: PRODUCT USED FOR UNKNOWN INDICATION
     Dates: start: 201007
  7. TOCILIZUMAB. [Suspect]
     Active Substance: TOCILIZUMAB
     Indication: PRODUCT USED FOR UNKNOWN INDICATION
     Dosage: UNK
     Route: 042
  8. GOLIMUMAB [Suspect]
     Active Substance: GOLIMUMAB
     Indication: PRODUCT USED FOR UNKNOWN INDICATION
     Dosage: UNK
     Route: 058
     Dates: start: 201103
  9. METHOTREXATE. [Suspect]
     Active Substance: METHOTREXATE
     Indication: PRODUCT USED FOR UNKNOWN INDICATION
     Dosage: ALSO RECEIVED 15 MG, WEEKLY FROM OCT-2010, 15 MG, UNK FROM MAR-2011, 15 MG, WEEKLY ON UNK DATE
     Route: 058
     Dates: start: 200808
  10. TOFACITINIB [Suspect]
     Active Substance: TOFACITINIB
     Indication: PRODUCT USED FOR UNKNOWN INDICATION
     Dosage: UNK
     Dates: start: 201711

REACTIONS (14)
  - Arthritis [Unknown]
  - Lower gastrointestinal haemorrhage [Unknown]
  - Osteoporosis [Unknown]
  - Hepatic steatosis [Unknown]
  - Chronic obstructive pulmonary disease [Unknown]
  - Gilbert^s syndrome [Unknown]
  - Rheumatoid arthritis [Unknown]
  - Drug ineffective [Unknown]
  - Depression [Unknown]
  - Rheumatoid factor increased [Unknown]
  - Blood bilirubin increased [Unknown]
  - Infection [Unknown]
  - Cardiac failure [Unknown]
  - Oral herpes [Unknown]

NARRATIVE: CASE EVENT DATE: 201003
